FAERS Safety Report 5248311-4 (Version None)
Quarter: 2007Q1

REPORT INFORMATION
  Report Type: 
  Country: None (occurrence: None)
  Receive Date: 20070227
  Receipt Date: 20070218
  Transmission Date: 20070707
  Serious: Yes (Death, Hospitalization)
  Sender: FDA-Public Use
  Company Number: RU-SHR-RU-2007-002178

PATIENT
  Age: 21 Year
  Sex: Male

DRUGS (1)
  1. BETASERON [Suspect]
     Indication: MULTIPLE SCLEROSIS
     Route: 058
     Dates: start: 20040101

REACTIONS (6)
  - COMA [None]
  - HEART RATE DECREASED [None]
  - MULTIPLE SCLEROSIS [None]
  - MYOCLONUS [None]
  - OPTIC NEURITIS RETROBULBAR [None]
  - RESPIRATORY FAILURE [None]
